FAERS Safety Report 7179018-4 (Version None)
Quarter: 2010Q4

REPORT INFORMATION
  Report Type: 
  Country: None (occurrence: None)
  Receive Date: 20101217
  Receipt Date: 20101217
  Transmission Date: 20110411
  Serious: No
  Sender: FDA-Public Use
  Company Number: None

PATIENT
  Sex: Female

DRUGS (2)
  1. CLONIDINE [Suspect]
     Dosage: 1/2 TABLET ONCE A DAY AM PO 1 TABLET ONCE A DAY PM PO
     Route: 048
     Dates: start: 20101214, end: 20101215
  2. CLONIDINE [Suspect]
     Dosage: 1/2 TABLET ONCE A DAY AM PO 1 TABLET ONCE A DAY PM PO
     Route: 048
     Dates: start: 20101214, end: 20101215

REACTIONS (2)
  - PRODUCT SUBSTITUTION ISSUE [None]
  - THERAPEUTIC RESPONSE DECREASED [None]
